FAERS Safety Report 17009771 (Version 1)
Quarter: 2019Q4

REPORT INFORMATION
  Report Type: Spontaneous
  Country: US (occurrence: US)
  Receive Date: 20191107
  Receipt Date: 20191107
  Transmission Date: 20200122
  Serious: No
  Sender: FDA-Public Use
  Company Number: None

PATIENT
  Age: 37 Year
  Sex: Female
  Weight: 54.43 kg

DRUGS (3)
  1. PARAGARD T 380A [Suspect]
     Active Substance: COPPER
     Dates: start: 20110316, end: 20191107
  2. MEGAFOODS BABY + ME 2 [Concomitant]
  3. PRENATAL VITAMIN [Concomitant]
     Active Substance: VITAMINS

REACTIONS (4)
  - Complication of device removal [None]
  - Device breakage [None]
  - Device dislocation [None]
  - Embedded device [None]

NARRATIVE: CASE EVENT DATE: 20191107
